FAERS Safety Report 17535503 (Version 1)
Quarter: 2020Q1

REPORT INFORMATION
  Report Type: Report from Study
  Country: GB (occurrence: GB)
  Receive Date: 20200312
  Receipt Date: 20200312
  Transmission Date: 20200409
  Serious: Yes (Other)
  Sender: FDA-Public Use
  Company Number: NVSC2020GB068625

PATIENT
  Sex: Male

DRUGS (1)
  1. SANDOSTATIN [Suspect]
     Active Substance: OCTREOTIDE ACETATE
     Indication: PRODUCT USED FOR UNKNOWN INDICATION
     Dosage: 30 MG, QMO (EVERY 28 DAYS, AS DIRECTED)
     Route: 030
     Dates: start: 2017

REACTIONS (4)
  - Malaise [Unknown]
  - Lower respiratory tract infection [Unknown]
  - Oropharyngeal discomfort [Unknown]
  - Inappropriate schedule of product administration [Unknown]
